FAERS Safety Report 5072296-7 (Version None)
Quarter: 2006Q3

REPORT INFORMATION
  Report Type: 
  Country: None (occurrence: None)
  Receive Date: 20060714
  Receipt Date: 20051017
  Transmission Date: 20061208
  Serious: No
  Sender: FDA-Public Use
  Company Number: 05P-163-0314443-00

PATIENT
  Age: 3 Year
  Sex: Female
  Weight: 18 kg

DRUGS (6)
  1. ULTANE [Suspect]
     Dosage: SEE IMAGE
     Dates: start: 20051013, end: 20051013
  2. PROPOFOL [Concomitant]
  3. LIDOCAINE [Concomitant]
  4. DEXAMETHASONE [Concomitant]
  5. FENTANYL [Concomitant]
  6. OXYGEN [Concomitant]

REACTIONS (3)
  - HYPERTENSION [None]
  - SOMNOLENCE [None]
  - TACHYCARDIA [None]
